FAERS Safety Report 20547794 (Version 1)
Quarter: 2022Q1

REPORT INFORMATION
  Report Type: Spontaneous
  Country: US (occurrence: US)
  Receive Date: 20220303
  Receipt Date: 20220303
  Transmission Date: 20220423
  Serious: Yes (Other)
  Sender: FDA-Public Use
  Company Number: US-OTSUKA-2022_009630

PATIENT
  Sex: Male

DRUGS (1)
  1. ARIPIPRAZOLE [Suspect]
     Active Substance: ARIPIPRAZOLE
     Indication: Autism spectrum disorder
     Dosage: UNK
     Route: 065
     Dates: start: 2014

REACTIONS (4)
  - Tourette^s disorder [Unknown]
  - Tardive dyskinesia [Unknown]
  - Hunger [Unknown]
  - Weight increased [Not Recovered/Not Resolved]
